FAERS Safety Report 22655505 (Version 1)
Quarter: 2023Q2

REPORT INFORMATION
  Report Type: Spontaneous
  Country: US (occurrence: US)
  Receive Date: 20230629
  Receipt Date: 20230629
  Transmission Date: 20230722
  Serious: No
  Sender: FDA-Public Use
  Company Number: US-PFIZER INC-PV202300112604

PATIENT
  Age: 65 Year
  Sex: Male

DRUGS (1)
  1. CIBINQO [Suspect]
     Active Substance: ABROCITINIB
     Indication: Dermatitis atopic
     Dosage: 100 MG, DAILY

REACTIONS (6)
  - Erythema [Unknown]
  - Lichenification [Unknown]
  - Dry skin [Unknown]
  - Pruritus [Unknown]
  - Rash [Not Recovered/Not Resolved]
  - Eczema [Unknown]
